FAERS Safety Report 11083912 (Version 8)
Quarter: 2015Q4

REPORT INFORMATION
  Report Type: Report from Study
  Country: US (occurrence: US)
  Receive Date: 20150501
  Receipt Date: 20151023
  Transmission Date: 20160304
  Serious: Yes (Hospitalization, Other)
  Sender: FDA-Public Use
  Company Number: US-GILEAD-2015-0151602

PATIENT
  Age: 64 Year
  Sex: Male

DRUGS (1)
  1. RANOLAZINE [Suspect]
     Active Substance: RANOLAZINE
     Indication: ANGINA PECTORIS
     Dosage: 500 MG, UNK
     Route: 048

REACTIONS (11)
  - Seizure [Unknown]
  - Wheelchair user [Unknown]
  - Angina pectoris [Unknown]
  - Hip fracture [Unknown]
  - Gastrointestinal disorder [Unknown]
  - Stent placement [Unknown]
  - Cerebrovascular accident [Unknown]
  - Arthralgia [Unknown]
  - Fall [Unknown]
  - Myocardial infarction [Unknown]
  - Cataract [Unknown]

NARRATIVE: CASE EVENT DATE: 201503
